FAERS Safety Report 5731161-X (Version None)
Quarter: 2008Q2

REPORT INFORMATION
  Report Type: 
  Country: None (occurrence: None)
  Receive Date: 20080505
  Receipt Date: 20080424
  Transmission Date: 20081010
  Serious: Yes (Disabling)
  Sender: FDA-Public Use
  Company Number: 2008BI010678

PATIENT
  Age: 48 Year
  Sex: Female
  Weight: 70 kg

DRUGS (6)
  1. AVONEX [Suspect]
     Indication: MULTIPLE SCLEROSIS
     Dosage: 30 UG; QW; IM
     Route: 030
     Dates: start: 20060821, end: 20080204
  2. SOLIFENACINE [Concomitant]
  3. MICROGYNON [Concomitant]
  4. BUDESONIDE [Concomitant]
  5. LORATADINE [Concomitant]
  6. DAGRAVIT TOTAAL 30 [Concomitant]

REACTIONS (2)
  - DEPRESSIVE SYMPTOM [None]
  - INFLUENZA LIKE ILLNESS [None]
